FAERS Safety Report 5479098-8 (Version None)
Quarter: 2007Q4

REPORT INFORMATION
  Report Type: 
  Country: None (occurrence: None)
  Receive Date: 20071006
  Receipt Date: 20070925
  Transmission Date: 20080405
  Serious: Yes (Other)
  Sender: FDA-Public Use
  Company Number: US-PFIZER INC-2007081613

PATIENT
  Sex: Female
  Weight: 97.3 kg

DRUGS (3)
  1. CHANTIX [Suspect]
     Indication: SMOKING CESSATION THERAPY
     Dosage: TEXT:EVERY DAY
  2. DIAZEPAM [Concomitant]
  3. RELAFEN [Concomitant]

REACTIONS (11)
  - ABNORMAL DREAMS [None]
  - ANGER [None]
  - ANXIETY [None]
  - EMOTIONAL DISORDER [None]
  - FEELING ABNORMAL [None]
  - FORMICATION [None]
  - HEADACHE [None]
  - INSOMNIA [None]
  - MOOD SWINGS [None]
  - NAUSEA [None]
  - PRURITUS [None]
